FAERS Safety Report 10136476 (Version 1)
Quarter: 2014Q2

REPORT INFORMATION
  Report Type: Spontaneous
  Country: US (occurrence: None)
  Receive Date: 20140425
  Receipt Date: 20140425
  Transmission Date: 20141212
  Serious: Yes (Other)
  Sender: FDA-Public Use
  Company Number: None

PATIENT
  Age: 51 Year
  Sex: Female
  Weight: 75.3 kg

DRUGS (8)
  1. LAMICTAL [Suspect]
     Indication: BIPOLAR DISORDER
     Dosage: 3 PILLS A DAY 3 DAILY- 1 AM, 2 PM BY MOUTH
     Route: 048
     Dates: start: 20080820, end: 20090603
  2. SEROQUEL(GENERIC) [Concomitant]
  3. PREMARIN [Concomitant]
  4. LOPRESSOR [Concomitant]
  5. SYNTHROID [Concomitant]
  6. OMEGA-3 [Concomitant]
  7. MULTIVITAMIN [Concomitant]
  8. STOOL SOFTENER [Concomitant]

REACTIONS (3)
  - Mania [None]
  - Thinking abnormal [None]
  - Product substitution issue [None]
